FAERS Safety Report 15854069 (Version 1)
Quarter: 2019Q1

REPORT INFORMATION
  Report Type: Spontaneous
  Country: US (occurrence: US)
  Receive Date: 20190122
  Receipt Date: 20190122
  Transmission Date: 20190417
  Serious: Yes (Other)
  Sender: FDA-Public Use
  Company Number: US-MACLEODS PHARMACEUTICALS US LTD-MAC2019019676

PATIENT

DRUGS (3)
  1. TRIAMCINOLONE ACETONIDE CREAM 0.1% [Suspect]
     Active Substance: TRIAMCINOLONE ACETONIDE
     Indication: EXFOLIATIVE RASH
     Dosage: UNK (MISUSE)
     Route: 061
  2. HYDROCORTISONE. [Suspect]
     Active Substance: HYDROCORTISONE
     Indication: EXFOLIATIVE RASH
     Dosage: UNK UNK, BID (MISUSE))
     Route: 061
  3. BETAMETHASONE. [Suspect]
     Active Substance: BETAMETHASONE
     Indication: EXFOLIATIVE RASH
     Dosage: UNK (MISUSE)
     Route: 061

REACTIONS (6)
  - Prescription drug used without a prescription [Recovered/Resolved]
  - Shared psychotic disorder [Recovered/Resolved]
  - Product administration error [Recovered/Resolved]
  - Withdrawal syndrome [Recovered/Resolved]
  - Perioral dermatitis [Recovered/Resolved]
  - Drug dependence [Recovered/Resolved]
